FAERS Safety Report 12185436 (Version 1)
Quarter: 2016Q1

REPORT INFORMATION
  Report Type: Spontaneous
  Country: FR (occurrence: FR)
  Receive Date: 20160316
  Receipt Date: 20160316
  Transmission Date: 20160526
  Serious: Yes (Hospitalization)
  Sender: FDA-Public Use
  Company Number: FR-ASTRAZENECA-2016SE27658

PATIENT
  Age: 27828 Day
  Sex: Female
  Weight: 68 kg

DRUGS (9)
  1. ATORVASTATIN [Concomitant]
     Active Substance: ATORVASTATIN
     Route: 048
  2. BISOPROLOL [Concomitant]
     Active Substance: BISOPROLOL
     Route: 048
  3. RILMENIDINE [Concomitant]
     Active Substance: RILMENIDINE
     Route: 048
  4. ALLOPURINOL. [Concomitant]
     Active Substance: ALLOPURINOL
     Route: 048
  5. HYTACAND [Suspect]
     Active Substance: CANDESARTAN CILEXETIL\HYDROCHLOROTHIAZIDE
     Indication: HYPERTENSION
     Dosage: 16MG/12.5 MG,  ONCE PER DAY
     Route: 048
     Dates: end: 20160210
  6. FLECAINE SR [Concomitant]
     Active Substance: FLECAINIDE ACETATE
     Route: 048
  7. LANZOR [Suspect]
     Active Substance: LANSOPRAZOLE
     Route: 048
  8. PREVISCAN [Concomitant]
     Active Substance: FLUINDIONE
     Route: 048
  9. TEMESTA [Concomitant]
     Active Substance: LORAZEPAM
     Route: 048

REACTIONS (6)
  - Nervous system disorder [Recovering/Resolving]
  - Anaemia [Unknown]
  - Disorientation [Unknown]
  - Altered state of consciousness [Unknown]
  - Memory impairment [Unknown]
  - Hyponatraemia [Recovering/Resolving]

NARRATIVE: CASE EVENT DATE: 20160210
